FAERS Safety Report 11794230 (Version 1)
Quarter: 2015Q4

REPORT INFORMATION
  Report Type: Spontaneous
  Country: DE (occurrence: DE)
  Receive Date: 20151202
  Receipt Date: 20151202
  Transmission Date: 20160305
  Serious: Yes (Congenital Anomaly, Other)
  Sender: FDA-Public Use
  Company Number: GXKR2015DE005276

PATIENT
  Age: 1 Day
  Sex: Male

DRUGS (5)
  1. TALVOSILEN [Suspect]
     Active Substance: ACETAMINOPHEN\CODEINE PHOSPHATE
     Indication: LABOUR PAIN
     Dosage: GESTATIONAL WEEK 39.2
     Route: 064
     Dates: start: 20150428, end: 20150428
  2. CYTOTEC [Concomitant]
     Active Substance: MISOPROSTOL
     Indication: LABOUR INDUCTION
     Dosage: THIRD TRIMESTER
     Route: 064
  3. CITALOPRAM [Suspect]
     Active Substance: CITALOPRAM HYDROBROMIDE
     Dosage: 20 MG, BID
     Route: 064
     Dates: start: 20140727, end: 20150428
  4. BUSCOPAN [Concomitant]
     Active Substance: BUTYLSCOPOLAMINE BROMIDE
     Indication: LABOUR PAIN
     Dosage: GESTATIONAL WEEK 39.2
     Route: 064
     Dates: start: 20150428, end: 20150428
  5. LAMOTRIGINE. [Suspect]
     Active Substance: LAMOTRIGINE
     Indication: EPILEPSY
     Dosage: 100 MG, BID
     Route: 064
     Dates: start: 20140727, end: 20150428

REACTIONS (5)
  - External auditory canal atresia [Not Recovered/Not Resolved]
  - Anomaly of external ear congenital [Not Recovered/Not Resolved]
  - Maternal drugs affecting foetus [None]
  - Respiratory disorder neonatal [Recovered/Resolved]
  - Umbilical cord around neck [None]

NARRATIVE: CASE EVENT DATE: 20150428
